FAERS Safety Report 7617939-6 (Version None)
Quarter: 2011Q3

REPORT INFORMATION
  Report Type: 
  Country: None (occurrence: None)
  Receive Date: 20110718
  Receipt Date: 20110705
  Transmission Date: 20111222
  Serious: Yes (Other)
  Sender: FDA-Public Use
  Company Number: PHHY2011US59493

PATIENT
  Sex: Female

DRUGS (3)
  1. RECLAST [Suspect]
     Dosage: 5 MG, UNK
     Route: 042
     Dates: start: 20110401
  2. VITAMIN D [Concomitant]
     Dosage: UNK UKN, UNK
  3. CALCIUM CARBONATE [Concomitant]
     Dosage: UNK UKN, UNK

REACTIONS (4)
  - PAIN [None]
  - FEELING ABNORMAL [None]
  - SENSITIVITY OF TEETH [None]
  - DENTAL CARIES [None]
